FAERS Safety Report 17009556 (Version 2)
Quarter: 2019Q4

REPORT INFORMATION
  Report Type: Spontaneous
  Country: JP (occurrence: JP)
  Receive Date: 20191108
  Receipt Date: 20191231
  Transmission Date: 20200122
  Serious: Yes (Other)
  Sender: FDA-Public Use
  Company Number: JP-PFIZER INC-2019441950

PATIENT
  Age: 80 Year
  Sex: Female

DRUGS (3)
  1. SOLANAX [Suspect]
     Active Substance: ALPRAZOLAM
     Indication: CARDIOVASCULAR SOMATIC SYMPTOM DISORDER
     Dosage: 1 DF, DAILY
     Route: 048
  2. SOLANAX [Suspect]
     Active Substance: ALPRAZOLAM
     Indication: INSOMNIA
     Dosage: 2 DF, DAILY
     Route: 048
  3. SOLANAX [Suspect]
     Active Substance: ALPRAZOLAM
     Indication: PANIC REACTION
     Dosage: 0.4 MG, 3X/DAY

REACTIONS (16)
  - Malaise [Unknown]
  - Infection in an immunocompromised host [Unknown]
  - Abdominal discomfort [Unknown]
  - Drug ineffective [Unknown]
  - Insomnia [Unknown]
  - Anxiety [Unknown]
  - Nausea [Unknown]
  - Nervous system disorder [Unknown]
  - Decreased appetite [Unknown]
  - Cystitis [Recovered/Resolved]
  - Wrong dose [Unknown]
  - Heat exhaustion [Unknown]
  - Physical deconditioning [Unknown]
  - Mental disorder [Unknown]
  - Hunger [Unknown]
  - Fatigue [Unknown]

NARRATIVE: CASE EVENT DATE: 201909
